FAERS Safety Report 9372930 (Version 1)
Quarter: 2013Q2

REPORT INFORMATION
  Report Type: Spontaneous
  Country: FR (occurrence: FR)
  Receive Date: 20130627
  Receipt Date: 20130627
  Transmission Date: 20140414
  Serious: Yes (Hospitalization)
  Sender: FDA-Public Use
  Company Number: FR-PFIZER INC-2013185595

PATIENT
  Age: 77 Year
  Sex: Female

DRUGS (17)
  1. LYRICA [Suspect]
     Dosage: 50 MG, 2X/DAY
     Route: 048
     Dates: start: 2013, end: 20130401
  2. TAHOR [Interacting]
     Dosage: 80 MG, 1X/DAY
     Route: 048
     Dates: start: 2012, end: 20130202
  3. TAHOR [Interacting]
     Dosage: 40 MG, 1X/DAY
     Route: 048
     Dates: start: 20130203, end: 20130328
  4. TRIATEC [Suspect]
     Dosage: 2.5 MG, 1X/DAY
     Route: 048
     Dates: end: 20130328
  5. OFLOXACINE [Suspect]
     Dosage: 200 MG, 1X/DAY
     Route: 048
     Dates: start: 20130205, end: 20130328
  6. FUMAFER [Suspect]
     Dosage: 33 MG, 3X/DAY
     Route: 048
     Dates: start: 20130319, end: 20130328
  7. FUCIDINE [Interacting]
     Dosage: 500 MG, 3X/DAY
     Route: 048
     Dates: start: 20130228, end: 20130328
  8. DOLIPRANE [Concomitant]
     Dosage: 1000 MG, AS NEEDED
     Route: 048
     Dates: start: 20130205, end: 20130403
  9. CONTRAMAL [Concomitant]
     Dosage: UNK
     Route: 048
     Dates: start: 20130216, end: 20130401
  10. PHLOROGLUCINOL [Concomitant]
     Dosage: 160 MG, 3X/DAY
     Route: 048
     Dates: start: 20130210, end: 20130329
  11. PRIMPERAN [Concomitant]
     Dosage: UNK
     Route: 042
     Dates: start: 20130207, end: 20130329
  12. INEXIUM [Concomitant]
     Dosage: 40 MG, 1X/DAY
     Route: 048
     Dates: start: 20130203
  13. IMOVANE [Concomitant]
     Dosage: 3.75 MG, 1X/DAY
     Route: 048
     Dates: start: 20130216
  14. CIPROFLOXACIN [Concomitant]
     Dosage: 500 MG, 2X/DAY
     Dates: start: 20130205, end: 20130328
  15. LASILIX [Concomitant]
     Dosage: 20 MG, SINGLE
     Route: 042
     Dates: start: 20130319
  16. XYZALL [Concomitant]
     Dosage: UNK
     Dates: start: 20130215, end: 20130220
  17. ACUPAN [Concomitant]
     Dosage: UNK
     Dates: start: 20130216, end: 20130228

REACTIONS (3)
  - Drug interaction [Recovered/Resolved]
  - Rhabdomyolysis [Recovered/Resolved]
  - Blood creatine phosphokinase increased [Recovered/Resolved]
